FAERS Safety Report 5665040-3 (Version None)
Quarter: 2008Q1

REPORT INFORMATION
  Report Type: 
  Country: None (occurrence: None)
  Receive Date: 20080314
  Receipt Date: 20080306
  Transmission Date: 20080703
  Serious: Yes (Hospitalization)
  Sender: FDA-Public Use
  Company Number: US-ABBOTT-08P-163-0441299-00

PATIENT
  Sex: Male

DRUGS (6)
  1. HUMIRA [Suspect]
     Indication: CROHN'S DISEASE
     Route: 058
     Dates: start: 20060911, end: 20080101
  2. FENOFIBRATE [Concomitant]
     Indication: DRUG USE FOR UNKNOWN INDICATION
  3. CHOLASOL [Concomitant]
     Indication: DRUG USE FOR UNKNOWN INDICATION
  4. RISEDRONATE SODIUM [Concomitant]
     Indication: DRUG USE FOR UNKNOWN INDICATION
  5. DUTASTERIDE [Concomitant]
     Indication: DRUG USE FOR UNKNOWN INDICATION
  6. ALFUZOSIN HYDROCHLORIDE [Concomitant]
     Indication: DRUG USE FOR UNKNOWN INDICATION

REACTIONS (13)
  - BIOPSY SKIN ABNORMAL [None]
  - CELLULITIS [None]
  - CHILLS [None]
  - ERYTHEMA [None]
  - EXTRAVASATION BLOOD [None]
  - HAEMORRHAGE [None]
  - HERPES ZOSTER [None]
  - PYREXIA [None]
  - SKIN DISCOLOURATION [None]
  - SKIN OEDEMA [None]
  - SKIN REACTION [None]
  - TYPE IV HYPERSENSITIVITY REACTION [None]
  - VASODILATATION [None]
